FAERS Safety Report 16201117 (Version 1)
Quarter: 2019Q2

REPORT INFORMATION
  Report Type: Spontaneous
  Country: US (occurrence: US)
  Receive Date: 20190416
  Receipt Date: 20190416
  Transmission Date: 20190711
  Serious: Yes (Death, Hospitalization, Other)
  Sender: FDA-Public Use
  Company Number: US-APOTEX-2019AP011861

PATIENT
  Age: 71 Year
  Sex: Male

DRUGS (4)
  1. SUNITINIB [Suspect]
     Active Substance: SUNITINIB
     Indication: RENAL CELL CARCINOMA STAGE IV
  2. GEMCITABINE [Suspect]
     Active Substance: GEMCITABINE\GEMCITABINE HYDROCHLORIDE
     Indication: RENAL CELL CARCINOMA STAGE IV
  3. SUNITINIB [Suspect]
     Active Substance: SUNITINIB
     Indication: CHEMOTHERAPY
     Dosage: UNK FOR AT LEAST 3 YEARS
     Route: 065
  4. GEMCITABINE [Suspect]
     Active Substance: GEMCITABINE\GEMCITABINE HYDROCHLORIDE
     Indication: CHEMOTHERAPY
     Dosage: UNK
     Route: 065

REACTIONS (1)
  - Acute kidney injury [Fatal]
